FAERS Safety Report 7286927-4 (Version None)
Quarter: 2011Q1

REPORT INFORMATION
  Report Type: 
  Country: None (occurrence: None)
  Receive Date: 20110211
  Receipt Date: 20110201
  Transmission Date: 20110831
  Serious: Yes (Death)
  Sender: FDA-Public Use
  Company Number: GB-BIOGENIDEC-2010BI032524

PATIENT
  Age: 54 Year
  Sex: Male

DRUGS (7)
  1. IBUPROFEN [Concomitant]
  2. SENNA [Concomitant]
  3. GABAPENTIN [Concomitant]
  4. AVONEX [Suspect]
     Indication: MULTIPLE SCLEROSIS
     Route: 030
     Dates: start: 20090323
  5. LACTULOSE [Concomitant]
  6. CO-CODAMOL [Concomitant]
  7. FLUOXETINE [Concomitant]

REACTIONS (1)
  - METASTATIC MALIGNANT MELANOMA [None]
